FAERS Safety Report 13370268 (Version 1)
Quarter: 2017Q1

REPORT INFORMATION
  Report Type: Spontaneous
  Country: IN (occurrence: IN)
  Receive Date: 20170324
  Receipt Date: 20170324
  Transmission Date: 20170429
  Serious: Yes (Other)
  Sender: FDA-Public Use
  Company Number: IN-PFIZER INC-2017126336

PATIENT
  Age: 38 Year
  Sex: Female

DRUGS (2)
  1. LETROZOLE. [Concomitant]
     Active Substance: LETROZOLE
     Dosage: UNK
  2. PALBACE [Suspect]
     Active Substance: PALBOCICLIB
     Indication: BREAST CANCER METASTATIC
     Dosage: 125 MG, 1X/DAY
     Route: 048

REACTIONS (6)
  - Headache [Unknown]
  - Abasia [Unknown]
  - Vomiting [Unknown]
  - Asthenia [Unknown]
  - Arthralgia [Unknown]
  - Pyrexia [Unknown]
